FAERS Safety Report 7753165-8 (Version None)
Quarter: 2011Q3

REPORT INFORMATION
  Report Type: 
  Country: None (occurrence: None)
  Receive Date: 20110915
  Receipt Date: 20110913
  Transmission Date: 20111222
  Serious: Yes (Hospitalization, Other)
  Sender: FDA-Public Use
  Company Number: IT-BRISTOL-MYERS SQUIBB COMPANY-16019911

PATIENT
  Age: 87 Year
  Sex: Female

DRUGS (7)
  1. IBRUPROFEN [Suspect]
     Indication: BACK PAIN
     Dosage: BRUFEN 600MG ORAL EFFERVESCENT GRANULATE, 1 UNIT/DAY,INTERRUPT ON 31DEC10.
     Dates: start: 20101226
  2. LASIX [Concomitant]
     Dosage: LASIX 25MCG TABS.
  3. ACETAMINOPHEN [Suspect]
     Indication: BACK PAIN
     Dosage: TACHIPIRIN 1000MG EFFERVESCENT TABS, 1 UNIT/DAY INTERRUPT ON 31DEC2010.
     Route: 048
     Dates: start: 20101226
  4. LANOXIN [Concomitant]
     Dosage: LANOXIN 0.125MG TABS
  5. LUVION [Concomitant]
     Dosage: LUVION 100MG CAPS
  6. COUMADIN [Suspect]
     Indication: ANTICOAGULANT THERAPY
     Dosage: COUMADIN TABS 5 MG INTERRUPT ON 31DEC2010
     Route: 048
     Dates: start: 20100101
  7. NITRODERM [Concomitant]

REACTIONS (4)
  - MELAENA [None]
  - GASTRIC ULCER [None]
  - ANAEMIA [None]
  - INTERNATIONAL NORMALISED RATIO INCREASED [None]
